FAERS Safety Report 6607954-3 (Version None)
Quarter: 2010Q1

REPORT INFORMATION
  Report Type: 
  Country: None (occurrence: None)
  Receive Date: 20100212
  Receipt Date: 20091023
  Transmission Date: 20100710
  Serious: No
  Sender: FDA-Public Use
  Company Number: 1000009583

PATIENT
  Age: 62 Year
  Sex: Female

DRUGS (10)
  1. SAVELLA [Suspect]
     Indication: FIBROMYALGIA
     Dosage: 100 MG (50 MG, 2 IN 1 D), ORAL
     Route: 048
     Dates: start: 20091001
  2. CYMBALTA [Concomitant]
  3. SYNTHROID [Concomitant]
  4. TRIAMTERENE AND HYDROCHLOROTHIAZIDE [Concomitant]
  5. METOPROLOL XR [Concomitant]
  6. FUROSEMIDE [Concomitant]
  7. PIROXICAM [Concomitant]
  8. DOXYCYCLINE [Concomitant]
  9. CRESTOR [Concomitant]
  10. TRAMADOL HCL [Concomitant]

REACTIONS (7)
  - ANXIETY [None]
  - BLOOD PRESSURE INCREASED [None]
  - FEELING JITTERY [None]
  - HYPERHIDROSIS [None]
  - MUSCLE SPASMS [None]
  - PALPITATIONS [None]
  - TREMOR [None]
